FAERS Safety Report 8508250 (Version 2)
Quarter: 2013Q1

REPORT INFORMATION
  Report Type: Spontaneous
  Country: US (occurrence: US)
  Receive Date: 20120412
  Receipt Date: 20130226
  Transmission Date: 20140127
  Serious: No
  Sender: FDA-Public Use
  Company Number: US-ASTRAZENECA-2011SE38141

PATIENT
  Age: 52 Year
  Sex: Male

DRUGS (1)
  1. NEXIUM [Suspect]
     Route: 048

REACTIONS (12)
  - Fall [Unknown]
  - Joint injury [Unknown]
  - Abdominal distension [Unknown]
  - Hernia [Unknown]
  - Gastrooesophageal reflux disease [Unknown]
  - Tinnitus [Unknown]
  - Sinusitis [Unknown]
  - Visual impairment [Unknown]
  - Diabetes mellitus [Unknown]
  - Dysstasia [Unknown]
  - Glossodynia [Unknown]
  - Expired drug administered [Unknown]
